FAERS Safety Report 7078876-1 (Version None)
Quarter: 2010Q4

REPORT INFORMATION
  Report Type: 
  Country: None (occurrence: None)
  Receive Date: 20101021
  Receipt Date: 20101008
  Transmission Date: 20110411
  Serious: Yes (Other)
  Sender: FDA-Public Use
  Company Number: 8042671

PATIENT
  Sex: Male
  Weight: 74 kg

DRUGS (8)
  1. CERTOLIZUMAB PEGOL (CDP870) [Suspect]
     Indication: CROHN'S DISEASE
     Dosage: (400 MG 1X/2 WEEKS SUBCUTANEOUS)
     Route: 058
     Dates: start: 20080826, end: 20081117
  2. PREDNISOLONE [Concomitant]
  3. MESALAZINE [Concomitant]
  4. LASIX [Concomitant]
  5. FOLATE [Concomitant]
  6. VITAMIN A [Concomitant]
  7. KELP /01214901/ [Concomitant]
  8. IMODIUM /00384302/ [Concomitant]

REACTIONS (2)
  - BENIGN NEOPLASM OF THYROID GLAND [None]
  - IRON DEFICIENCY ANAEMIA [None]
